FAERS Safety Report 9320739 (Version 1)
Quarter: 2013Q2

REPORT INFORMATION
  Report Type: Spontaneous
  Country: US (occurrence: US)
  Receive Date: 20130531
  Receipt Date: 20130531
  Transmission Date: 20140414
  Serious: No
  Sender: FDA-Public Use
  Company Number: US-BIOGENIDEC-2013BI048219

PATIENT
  Sex: Female

DRUGS (4)
  1. TYSABRI [Suspect]
     Indication: MULTIPLE SCLEROSIS
     Route: 042
     Dates: start: 20100604
  2. MISOPROSTOL [Concomitant]
     Indication: CONSTIPATION
  3. MIRALAX [Concomitant]
     Indication: CONSTIPATION
  4. BENEFIBER [Concomitant]
     Indication: CONSTIPATION

REACTIONS (3)
  - Hypertonic bladder [Not Recovered/Not Resolved]
  - Insomnia [Not Recovered/Not Resolved]
  - Gastrointestinal hypomotility [Not Recovered/Not Resolved]
